FAERS Safety Report 11736842 (Version 1)
Quarter: 2015Q4

REPORT INFORMATION
  Report Type: Spontaneous
  Country: US (occurrence: US)
  Receive Date: 20151113
  Receipt Date: 20151113
  Transmission Date: 20160304
  Serious: No
  Sender: FDA-Public Use
  Company Number: US-JNJFOC-20151003574

PATIENT
  Age: 64 Year
  Sex: Female
  Weight: 145.15 kg

DRUGS (1)
  1. IMODIUM MULTI-SYMPTOM RELIEF [Suspect]
     Active Substance: DIMETHICONE\LOPERAMIDE HYDROCHLORIDE
     Indication: DIARRHOEA
     Dosage: 2 CAPLETS ONCE AT A TIME.
     Route: 048
     Dates: start: 20151005, end: 20151005

REACTIONS (5)
  - Foreign body [Recovered/Resolved]
  - Product formulation issue [Recovered/Resolved]
  - Choking [Recovered/Resolved]
  - Product physical issue [Recovered/Resolved]
  - Dysphagia [Recovered/Resolved]

NARRATIVE: CASE EVENT DATE: 20151005
